FAERS Safety Report 5274009-2 (Version None)
Quarter: 2007Q1

REPORT INFORMATION
  Report Type: 
  Country: None (occurrence: None)
  Receive Date: 20070323
  Receipt Date: 20070316
  Transmission Date: 20070707
  Serious: Yes (Hospitalization)
  Sender: FDA-Public Use
  Company Number: FR-GLAXOSMITHKLINE-B0462602A

PATIENT
  Age: 48 Year
  Sex: Female
  Weight: 62 kg

DRUGS (6)
  1. TRIZIVIR [Suspect]
     Indication: HIV INFECTION
     Dosage: 2UNIT PER DAY
     Route: 048
     Dates: start: 20061129
  2. BACTRIM [Suspect]
     Dosage: 400MG PER DAY
     Route: 048
  3. DI-ANTALVIC [Suspect]
     Dosage: 6UNIT PER DAY
     Route: 048
     Dates: start: 20061123
  4. RIVOTRIL [Suspect]
     Dosage: .2MG PER DAY
     Route: 048
     Dates: start: 20061125, end: 20061130
  5. NEURONTIN [Suspect]
     Dosage: 4UNIT PER DAY
     Route: 048
     Dates: start: 20061129
  6. KALETRA [Suspect]
     Indication: HIV INFECTION
     Dosage: 4UNIT PER DAY
     Route: 048
     Dates: start: 20061129

REACTIONS (2)
  - ATRIOVENTRICULAR BLOCK FIRST DEGREE [None]
  - SYNCOPE VASOVAGAL [None]
